FAERS Safety Report 24367963 (Version 1)
Quarter: 2024Q3

REPORT INFORMATION
  Report Type: Spontaneous
  Country: US (occurrence: US)
  Receive Date: 20240926
  Receipt Date: 20240926
  Transmission Date: 20241016
  Serious: Yes (Other)
  Sender: ELI LILLY AND CO
  Company Number: US-ELI_LILLY_AND_COMPANY-US202409011338

PATIENT
  Age: 60 Year
  Sex: Female

DRUGS (1)
  1. HUMULIN R U-500 [Suspect]
     Active Substance: INSULIN HUMAN
     Indication: Product used for unknown indication
     Dosage: 120U IN THE MORNING AND 80U IN THE EVENING
     Route: 065

REACTIONS (4)
  - Cerebrovascular accident [Unknown]
  - Cerebrovascular accident [Unknown]
  - Fall [Unknown]
  - Head injury [Unknown]

NARRATIVE: CASE EVENT DATE: 20230401
